FAERS Safety Report 23154681 (Version 2)
Quarter: 2023Q4

REPORT INFORMATION
  Report Type: Spontaneous
  Country: US (occurrence: US)
  Receive Date: 20231107
  Receipt Date: 20231115
  Transmission Date: 20240110
  Serious: Yes (Other)
  Sender: FDA-Public Use
  Company Number: US-SA-2023SA339020

PATIENT
  Age: 17 Year
  Sex: Male

DRUGS (4)
  1. HYDROCORTISONE [Suspect]
     Active Substance: HYDROCORTISONE
     Indication: Adrenal insufficiency
     Dosage: UNK
  2. LEVOTHYROXINE SODIUM [Suspect]
     Active Substance: LEVOTHYROXINE SODIUM
     Indication: Central hypothyroidism
     Dosage: UNK
  3. WARFARIN [Concomitant]
     Active Substance: WARFARIN
     Indication: Deep vein thrombosis
     Dosage: UNK
  4. WARFARIN [Concomitant]
     Active Substance: WARFARIN
     Indication: Pulmonary embolism

REACTIONS (9)
  - Diabetes insipidus [Unknown]
  - Unmasking of previously unidentified disease [Unknown]
  - Adrenal insufficiency [Unknown]
  - Pancytopenia [Unknown]
  - Decompensated hypothyroidism [Unknown]
  - Depression [Unknown]
  - Hypothermia [Unknown]
  - Hypotension [Unknown]
  - Bradycardia [Unknown]
